FAERS Safety Report 19087690 (Version 1)
Quarter: 2021Q2

REPORT INFORMATION
  Report Type: Other
  Country: US (occurrence: US)
  Receive Date: 20210402
  Receipt Date: 20210402
  Transmission Date: 20210717
  Serious: Yes (Other)
  Sender: FDA-Public Use
  Company Number: US-INTERCEPT-PM2021000898

PATIENT
  Sex: Female

DRUGS (3)
  1. OCALIVA [Suspect]
     Active Substance: OBETICHOLIC ACID
     Dosage: 10 MILLIGRAM, QD
     Route: 048
  2. OCALIVA [Suspect]
     Active Substance: OBETICHOLIC ACID
     Indication: PRIMARY BILIARY CHOLANGITIS
     Dosage: 5 MILLIGRAM, QD
     Route: 048
     Dates: start: 201710
  3. URSODIOL. [Concomitant]
     Active Substance: URSODIOL
     Dosage: 500 MILLIGRAM, BID
     Route: 048

REACTIONS (7)
  - Autoimmune disorder [Unknown]
  - Tooth loss [Unknown]
  - Fatigue [Unknown]
  - Pruritus [Unknown]
  - Laboratory test abnormal [Unknown]
  - Bone loss [Unknown]
  - Scratch [Unknown]
